FAERS Safety Report 5345734-X (Version None)
Quarter: 2007Q2

REPORT INFORMATION
  Report Type: 
  Country: None (occurrence: None)
  Receive Date: 20070601
  Receipt Date: 20070524
  Transmission Date: 20071010
  Serious: Yes (Life-Threatening, Hospitalization)
  Sender: FDA-Public Use
  Company Number: 2007-159038-NL

PATIENT
  Age: 33 Year
  Sex: Female

DRUGS (5)
  1. FOLLITROPIN BETA [Suspect]
     Indication: OVARIAN HYPERFUNCTION
     Dosage: 200 IU; SUBCUTANEOUS
     Route: 058
     Dates: start: 20070408, end: 20070416
  2. MARVELON [Suspect]
     Indication: OVARIAN HYPERFUNCTION
     Dosage: 1DF; ORAL
     Route: 048
     Dates: start: 20070314, end: 20070403
  3. GANIRELIX ACETATE INJECTION [Suspect]
     Dosage: 0.25 MG; SUBCUTANEOUS
     Route: 058
     Dates: start: 20070412, end: 20070416
  4. CHORIONIC GONADOTROPIN [Suspect]
     Indication: OVULATION INDUCTION
     Dosage: 10000 IU, SUBCUTANEOUS
     Route: 058
     Dates: start: 20070416, end: 20070416
  5. PROGESTERONE [Suspect]

REACTIONS (1)
  - ECTOPIC PREGNANCY [None]
